FAERS Safety Report 9378408 (Version 1)
Quarter: 2013Q3

REPORT INFORMATION
  Report Type: Spontaneous
  Country: US (occurrence: US)
  Receive Date: 20130701
  Receipt Date: 20130701
  Transmission Date: 20140515
  Serious: Yes (Death)
  Sender: FDA-Public Use
  Company Number: US-RB-004599-06

PATIENT
  Age: 56 Year
  Sex: Male
  Weight: 104 kg

DRUGS (11)
  1. SUBUTEX [Suspect]
     Route: 060
     Dates: start: 20040603, end: 20040617
  2. SUBUTEX [Suspect]
     Route: 060
     Dates: start: 20040618, end: 20041218
  3. SUBUTEX [Suspect]
     Indication: PAIN
     Dosage: 8 MG IN AM AND 4 MG IN PM.
     Route: 060
     Dates: start: 20041219, end: 20050119
  4. SUBUTEX [Suspect]
     Route: 060
     Dates: start: 20050620, end: 2011
  5. LIBRIUM [Concomitant]
     Indication: ANXIETY
     Dosage: DOSAGE STARTED YEARS AGO.
     Route: 060
  6. ASPIRIN [Concomitant]
     Indication: ANTICOAGULANT THERAPY
     Dates: start: 200605
  7. PLAVIX [Concomitant]
     Indication: ANTICOAGULANT THERAPY
     Dates: start: 200601, end: 200605
  8. DIGOXIN [Concomitant]
     Indication: CARDIAC FAILURE
     Dates: start: 200506
  9. ATENOLOL [Concomitant]
     Indication: HYPERTENSION
     Dates: start: 200506
  10. LISINOPRIL [Concomitant]
     Indication: HYPERTENSION
     Dates: start: 200506
  11. ZANTAC [Concomitant]
     Indication: ABDOMINAL DISCOMFORT
     Dosage: DOSE STARTED YEARS AGO, TAKEN AS NEEDED.

REACTIONS (7)
  - Confusional state [Recovered/Resolved]
  - Hot flush [Recovered/Resolved]
  - Disturbance in attention [Recovered/Resolved]
  - Hyperhidrosis [Recovered/Resolved]
  - Pain [Recovered/Resolved]
  - Epigastric discomfort [Recovered/Resolved]
  - Cardiac disorder [Fatal]
